FAERS Safety Report 16393467 (Version 1)
Quarter: 2019Q2

REPORT INFORMATION
  Report Type: Report from Study
  Country: GE (occurrence: GE)
  Receive Date: 20190605
  Receipt Date: 20190605
  Transmission Date: 20190711
  Serious: Yes (Life-Threatening, Other)
  Sender: FDA-Public Use
  Company Number: GE-TEVA-2019-GE-1060656

PATIENT
  Age: 61 Year
  Sex: Male
  Weight: 90 kg

DRUGS (7)
  1. EMETRON [Concomitant]
     Indication: PREMEDICATION
     Dosage: 8 MILLIGRAM DAILY;
     Route: 042
     Dates: start: 20190524, end: 20190527
  2. DEXAMETHASONE. [Concomitant]
     Active Substance: DEXAMETHASONE
     Indication: PREMEDICATION
     Dosage: ONCE
     Route: 042
     Dates: start: 20190524, end: 20190526
  3. RANITIDINE. [Concomitant]
     Active Substance: RANITIDINE
     Indication: PREMEDICATION
     Dosage: ONCE
     Route: 042
     Dates: start: 20190524, end: 20190524
  4. IRINOTECAN [Suspect]
     Active Substance: IRINOTECAN
     Indication: ADENOCARCINOMA PANCREAS
     Dosage: ONCE
     Route: 042
     Dates: start: 20190426, end: 20190426
  5. FOLL-CELL (LEUKOVIRON) [Concomitant]
     Indication: ADENOCARCINOMA PANCREAS
     Dosage: ONCE
     Route: 042
     Dates: start: 20190524, end: 20190524
  6. MORPHINE HYDROCHLORIDE [Concomitant]
     Active Substance: MORPHINE HYDROCHLORIDE
     Indication: CANCER PAIN
     Dosage: 120 MILLIGRAM DAILY;
     Route: 048
     Dates: start: 20190531
  7. ONIVYDE [Suspect]
     Active Substance: IRINOTECAN HYDROCHLORIDE
     Indication: ADENOCARCINOMA PANCREAS
     Dosage: ONCE
     Route: 042
     Dates: start: 20190524, end: 20190524

REACTIONS (1)
  - Hyperbilirubinaemia [Not Recovered/Not Resolved]

NARRATIVE: CASE EVENT DATE: 20190530
